FAERS Safety Report 5596190-8 (Version None)
Quarter: 2007Q4

REPORT INFORMATION
  Report Type: 
  Country: None (occurrence: None)
  Receive Date: 20071218
  Receipt Date: 20070221
  Transmission Date: 20080405
  Serious: Yes (Hospitalization, Other)
  Sender: FDA-Public Use
  Company Number: 2006132729

PATIENT
  Age: 46 Year
  Sex: Female
  Weight: 95.3 kg

DRUGS (1)
  1. BEXTRA [Suspect]
     Indication: MUSCLE SPASMS
     Dosage: (20 MG)
     Dates: start: 20040804

REACTIONS (1)
  - MYOCARDIAL INFARCTION [None]
